FAERS Safety Report 5317472-0 (Version None)
Quarter: 2007Q2

REPORT INFORMATION
  Report Type: 
  Country: None (occurrence: None)
  Receive Date: 20070507
  Receipt Date: 20070426
  Transmission Date: 20071010
  Serious: Yes (Other)
  Sender: FDA-Public Use
  Company Number: PHEH2007US04720

PATIENT
  Sex: Female

DRUGS (2)
  1. ELAVIL [Concomitant]
  2. ZELNORM [Suspect]
     Indication: GASTROINTESTINAL MOTILITY DISORDER
     Dosage: 6 MG, BID
     Dates: end: 20070408

REACTIONS (2)
  - CHOLECYSTECTOMY [None]
  - DRUG INEFFECTIVE [None]
